FAERS Safety Report 24548898 (Version 2)
Quarter: 2025Q1

REPORT INFORMATION
  Report Type: Spontaneous
  Country: US (occurrence: US)
  Receive Date: 20241025
  Receipt Date: 20250128
  Transmission Date: 20250409
  Serious: No
  Sender: BLUEPRINT MEDICINES
  Company Number: US-Blueprint Medicines Corporation-5121

PATIENT
  Age: 53 Year
  Sex: Male

DRUGS (3)
  1. AYVAKIT [Suspect]
     Active Substance: AVAPRITINIB
     Indication: Systemic mastocytosis
     Route: 065
     Dates: start: 20240209
  2. AYVAKIT [Suspect]
     Active Substance: AVAPRITINIB
     Indication: Mastocytoma
     Route: 065
     Dates: start: 20240209
  3. XOLAIR [Concomitant]
     Active Substance: OMALIZUMAB
     Indication: Product used for unknown indication
     Route: 065

REACTIONS (13)
  - Chest discomfort [Unknown]
  - Chest pain [Unknown]
  - Stress [Unknown]
  - Muscle strain [Unknown]
  - Urticaria [Unknown]
  - Influenza [Unknown]
  - Stress at work [Unknown]
  - Asthma [Unknown]
  - Face oedema [Unknown]
  - Oedema peripheral [Unknown]
  - Eyelid oedema [Unknown]
  - Papule [Unknown]
  - Skin haemorrhage [Unknown]

NARRATIVE: CASE EVENT DATE: 20241201
